FAERS Safety Report 9096578 (Version 1)
Quarter: 2013Q1

REPORT INFORMATION
  Report Type: Spontaneous
  Country: US (occurrence: None)
  Receive Date: 20130124
  Receipt Date: 20130124
  Transmission Date: 20140127
  Serious: Yes (Hospitalization)
  Sender: FDA-Public Use
  Company Number: IPC201301-000003

PATIENT
  Age: 48 Year
  Sex: Male

DRUGS (23)
  1. METFORMIN HYDROCHLORIDE [Suspect]
     Indication: TYPE 2 DIABETES MELLITUS
     Dates: end: 20120321
  2. PROTONIX [Suspect]
  3. SIMVASTATIN [Suspect]
  4. HUMALOG [Suspect]
     Indication: TYPE 2 DIABETES MELLITUS
     Dates: end: 20120102
  5. LANTUS (INSULIN GLARGINE) (INSULIN GLARGINE) [Suspect]
     Indication: TYPE 2 DIABETES MELLITUS
  6. NOVOLOG [Suspect]
     Indication: TYPE 2 DIABETES MELLITUS
     Dates: end: 20111231
  7. OXYCONTIN [Suspect]
     Indication: PRODUCT USED FOR UNKNOWN INDICATION
     Dates: start: 20111231
  8. XANAX [Suspect]
  9. NEURONTIN [Suspect]
  10. NORVASC [Suspect]
  11. HYDROCODONE BITARTRATE, PARACETAMOL) (HYDROCODONE BITARTRATE, PARACETAMOL) [Suspect]
  12. PERCOCET [Suspect]
  13. LOPRESSOR [Suspect]
  14. HYDRALAZINE HYDROCHLORIDE [Suspect]
  15. LISINOPRIL (LISINOPRIL) (LISINOPRIL) [Suspect]
  16. PLACEBO [Suspect]
     Indication: TYPE 2 DIABETES MELLITUS
  17. ASPIRIN (ACETYLSALICYLIC ACID) (ACETYLSALICYLIC ACID) [Concomitant]
  18. ADP ANTAGONIST [Concomitant]
  19. BETA-BLOCKER [Concomitant]
  20. STATIN [Concomitant]
  21. DIRECT RENIN INHIBITOR [Concomitant]
  22. CALCIUM ANTAGONIST [Concomitant]
  23. NITRATES [Concomitant]

REACTIONS (3)
  - Depression [None]
  - Electrocardiogram ST segment elevation [None]
  - Pain [None]
